FAERS Safety Report 4468072-6 (Version None)
Quarter: 2004Q4

REPORT INFORMATION
  Report Type: 
  Country: None (occurrence: None)
  Receive Date: 20041004
  Receipt Date: 20041004
  Transmission Date: 20050328
  Serious: Yes (Other)
  Sender: FDA-Public Use
  Company Number: None

PATIENT
  Age: 59 Year
  Sex: Male
  Weight: 126.6 kg

DRUGS (20)
  1. ROSIGLITAZONE [Suspect]
  2. HUMULIN N [Concomitant]
  3. METFORMIN HCL [Concomitant]
  4. ALBUTEROL / IPRATROP [Concomitant]
  5. THEOPHYLLINE (INWOOD) [Concomitant]
  6. INSULIN SYRINGE [Concomitant]
  7. GEMFIBROZIL [Concomitant]
  8. BRIMONIDINE TARTRATE [Concomitant]
  9. ACCU-CHEK COMFORT CURVE-H TEST STRIP [Concomitant]
  10. HUMULIN R [Concomitant]
  11. FOSINOPRIL NA [Concomitant]
  12. GLYBURIDE [Concomitant]
  13. TRIAMCINOLONE ACETONIDE [Concomitant]
  14. FUROSEMIDE [Concomitant]
  15. FORMOTEROL FUMARATE [Concomitant]
  16. FLUNISOLIDE [Concomitant]
  17. ALCOHOL PREP PAD [Concomitant]
  18. TRAVOPROST [Concomitant]
  19. LATANOPROST [Concomitant]
  20. LANCET [Concomitant]

REACTIONS (1)
  - DYSPNOEA [None]
